FAERS Safety Report 13803347 (Version 3)
Quarter: 2017Q4

REPORT INFORMATION
  Report Type: Spontaneous
  Country: JP (occurrence: JP)
  Receive Date: 20170728
  Receipt Date: 20171206
  Transmission Date: 20180320
  Serious: Yes (Life-Threatening, Hospitalization, Other)
  Sender: FDA-Public Use
  Company Number: JP-JNJFOC-20170720469

PATIENT
  Age: 76 Year
  Sex: Male
  Weight: 63 kg

DRUGS (12)
  1. AZILVA [Concomitant]
     Active Substance: AZILSARTAN KAMEDOXOMIL
     Indication: HYPERTENSION
     Route: 048
     Dates: end: 20170707
  2. XARELTO [Concomitant]
     Active Substance: RIVAROXABAN
     Indication: ATRIAL FIBRILLATION
     Route: 048
     Dates: end: 20170707
  3. CRESTOR [Concomitant]
     Active Substance: ROSUVASTATIN CALCIUM
     Indication: DYSLIPIDAEMIA
     Route: 048
     Dates: end: 20170707
  4. POLAPREZINC [Concomitant]
     Active Substance: POLAPREZINC
     Indication: CHRONIC GASTRITIS
     Route: 048
     Dates: end: 20170707
  5. PAXIL [Concomitant]
     Active Substance: PAROXETINE HYDROCHLORIDE
     Indication: DEPRESSION
     Route: 048
     Dates: end: 20170707
  6. ZYTIGA [Suspect]
     Active Substance: ABIRATERONE ACETATE
     Indication: PROSTATE CANCER
     Route: 048
     Dates: start: 201701, end: 20170707
  7. PLAVIX [Concomitant]
     Active Substance: CLOPIDOGREL BISULFATE
     Indication: ANGINA PECTORIS
     Route: 048
     Dates: end: 20170707
  8. AZILVA [Concomitant]
     Active Substance: AZILSARTAN KAMEDOXOMIL
     Indication: ANGINA PECTORIS
     Route: 048
     Dates: end: 20170707
  9. PREDONINE [Concomitant]
     Active Substance: PREDNISOLONE
     Indication: PROSTATE CANCER
     Route: 048
     Dates: start: 201701, end: 20170707
  10. GASMOTIN [Concomitant]
     Active Substance: MOSAPRIDE CITRATE
     Indication: CHRONIC GASTRITIS
     Route: 048
     Dates: end: 20170707
  11. FLORID-D [Concomitant]
     Active Substance: MICONAZOLE
     Indication: TINEA INFECTION
     Route: 062
     Dates: end: 20170707
  12. SENNOSIDE [Concomitant]
     Active Substance: SENNOSIDES
     Indication: CONSTIPATION
     Route: 048
     Dates: end: 20170707

REACTIONS (5)
  - Adrenal insufficiency [Recovering/Resolving]
  - Hypokalaemia [Recovering/Resolving]
  - Hyperaldosteronism [Recovering/Resolving]
  - Adrenomegaly [Unknown]
  - Thalamus haemorrhage [Recovered/Resolved with Sequelae]

NARRATIVE: CASE EVENT DATE: 20170707
